FAERS Safety Report 9837698 (Version 2)
Quarter: 2014Q1

REPORT INFORMATION
  Report Type: Spontaneous
  Country: US (occurrence: US)
  Receive Date: 20140123
  Receipt Date: 20140225
  Transmission Date: 20141002
  Serious: Yes (Other)
  Sender: FDA-Public Use
  Company Number: US-ASTRAZENECA-2014SE04030

PATIENT
  Age: 55 Year
  Sex: Male
  Weight: 90.7 kg

DRUGS (5)
  1. NEXIUM [Suspect]
     Indication: GASTROOESOPHAGEAL REFLUX DISEASE
     Route: 048
     Dates: start: 2001
  2. PRILOSEC [Suspect]
     Indication: GASTROOESOPHAGEAL REFLUX DISEASE
     Route: 048
     Dates: end: 2001
  3. BENICAR/HCTZ [Concomitant]
     Indication: BLOOD PRESSURE ABNORMAL
     Dosage: 40/12.5, 1 TABLET DAILY
     Route: 048
     Dates: start: 201309
  4. FISH OIL [Concomitant]
     Indication: SUPPLEMENTATION THERAPY
  5. VITAMINS [Concomitant]
     Indication: SUPPLEMENTATION THERAPY

REACTIONS (2)
  - Bone loss [Unknown]
  - Periodontal disease [Unknown]
